FAERS Safety Report 5924229-6 (Version None)
Quarter: 2008Q4

REPORT INFORMATION
  Report Type: 
  Country: None (occurrence: None)
  Receive Date: 20081020
  Receipt Date: 20081010
  Transmission Date: 20090506
  Serious: Yes (Hospitalization, Other)
  Sender: FDA-Public Use
  Company Number: US-ELI_LILLY_AND_COMPANY-US200709003264

PATIENT
  Sex: Female

DRUGS (7)
  1. FORTEO [Suspect]
     Indication: OSTEOPOROSIS
     Dosage: UNK, EACH MORNING
     Dates: start: 20070314
  2. ACTOS [Concomitant]
  3. PRAVACHOL [Concomitant]
     Dosage: 10 MG, UNK
  4. CELEXA [Concomitant]
     Dosage: 40 MG, UNK
  5. MULTI-VITAMINS [Concomitant]
  6. VITAMINS [Concomitant]
  7. FISH OIL [Concomitant]

REACTIONS (6)
  - DIZZINESS [None]
  - FATIGUE [None]
  - LOSS OF CONSCIOUSNESS [None]
  - NAUSEA [None]
  - SYNCOPE [None]
  - VOMITING [None]
